FAERS Safety Report 4520204-7 (Version None)
Quarter: 2004Q4

REPORT INFORMATION
  Report Type: 
  Country: None (occurrence: None)
  Receive Date: 20041027
  Receipt Date: 20040831
  Transmission Date: 20050328
  Serious: Yes (Death)
  Sender: FDA-Public Use
  Company Number: 04P-163-0271977-00

PATIENT
  Sex: Female

DRUGS (6)
  1. SYNTHROID [Suspect]
     Dosage: 100 MCG 1 IN 1 D
  2. CONJUGATED ESTROGEN [Concomitant]
  3. DIGOXIN [Concomitant]
  4. FUROSEMIDE [Concomitant]
  5. METOCLOPRAMIDE [Concomitant]
  6. HUMAN MIXTARD [Concomitant]

REACTIONS (1)
  - DEATH [None]
